FAERS Safety Report 16539041 (Version 2)
Quarter: 2019Q3

REPORT INFORMATION
  Report Type: Report from Study
  Country: BR (occurrence: BR)
  Receive Date: 20190708
  Receipt Date: 20190811
  Transmission Date: 20191004
  Serious: Yes (Other)
  Sender: FDA-Public Use
  Company Number: PHHY2019BR036922

PATIENT
  Age: 66 Year
  Sex: Male
  Weight: 72 kg

DRUGS (1)
  1. COSENTYX [Suspect]
     Active Substance: SECUKINUMAB
     Indication: ANKYLOSING SPONDYLITIS
     Dosage: 150 MG, QMO
     Route: 058
     Dates: start: 20181121

REACTIONS (8)
  - Back pain [Unknown]
  - Peripheral swelling [Recovered/Resolved]
  - Helicobacter infection [Unknown]
  - Spinal pain [Not Recovered/Not Resolved]
  - Joint swelling [Recovered/Resolved]
  - Urinary tract infection [Recovered/Resolved]
  - Arthralgia [Recovering/Resolving]
  - Prostatitis [Recovered/Resolved]

NARRATIVE: CASE EVENT DATE: 201812
